FAERS Safety Report 8294394-7 (Version None)
Quarter: 2012Q2

REPORT INFORMATION
  Report Type: 
  Country: None (occurrence: None)
  Receive Date: 20120418
  Receipt Date: 20120411
  Transmission Date: 20120825
  Serious: Yes (Life-Threatening, Hospitalization)
  Sender: FDA-Public Use
  Company Number: CA-CELGENEUS-028-21660-11101704

PATIENT
  Age: 56 Year
  Sex: Female
  Weight: 165 kg

DRUGS (17)
  1. DOCUSATE [Concomitant]
     Route: 065
  2. EPREX [Concomitant]
     Route: 041
  3. ZOPICLONE [Concomitant]
     Route: 048
  4. PROCHLORPERAZINE [Concomitant]
     Route: 065
  5. DIMENHYDRINATE [Concomitant]
     Route: 065
  6. DOMPERIDONE [Concomitant]
     Route: 048
  7. LORAZEPAM [Concomitant]
     Route: 065
  8. SODIUM CHLORIDE [Concomitant]
     Route: 065
  9. ACETAMINOPHEN [Concomitant]
     Route: 065
  10. ATACAND [Concomitant]
     Route: 048
  11. LACTULOSE [Concomitant]
     Route: 065
  12. MORPHINE [Concomitant]
     Route: 065
  13. PANTOPRAZOLE [Concomitant]
     Route: 065
  14. SENNA-MINT WAF [Concomitant]
     Route: 065
  15. ABRAXANE [Suspect]
     Dosage: 235 MILLIGRAM
     Route: 041
     Dates: start: 20110321, end: 20110322
  16. FENTANYL-100 [Concomitant]
     Route: 065
  17. TPN [Concomitant]
     Route: 065

REACTIONS (1)
  - RENAL FAILURE ACUTE [None]
